FAERS Safety Report 13092642 (Version 1)
Quarter: 2017Q1

REPORT INFORMATION
  Report Type: Spontaneous
  Country: US (occurrence: US)
  Receive Date: 20170105
  Receipt Date: 20170105
  Transmission Date: 20170428
  Serious: Yes (Hospitalization)
  Sender: FDA-Public Use
  Company Number: None

PATIENT
  Age: 71 Year
  Sex: Female
  Weight: 64 kg

DRUGS (14)
  1. CALCIUM CARBONATE-VITAMIN D3 [Concomitant]
  2. MEMANTINE XR [Concomitant]
  3. RIVAROXABAN [Concomitant]
     Active Substance: RIVAROXABAN
  4. SPIRONOLACTONE. [Suspect]
     Active Substance: SPIRONOLACTONE
     Indication: HYPERTENSION
     Route: 048
  5. ATORVASTATIN [Concomitant]
     Active Substance: ATORVASTATIN
  6. DONEPEZIL. [Concomitant]
     Active Substance: DONEPEZIL
  7. FUROSEMIDE. [Concomitant]
     Active Substance: FUROSEMIDE
  8. SPIRONOLACTONE. [Suspect]
     Active Substance: SPIRONOLACTONE
     Indication: CARDIAC FAILURE CONGESTIVE
     Route: 048
  9. LISINOPRIL. [Suspect]
     Active Substance: LISINOPRIL
     Indication: HYPERTENSION
     Route: 048
  10. ALBUTEROL SULFATE. [Concomitant]
     Active Substance: ALBUTEROL SULFATE
  11. DILTIAZEM. [Concomitant]
     Active Substance: DILTIAZEM
  12. IBUPROFEN. [Concomitant]
     Active Substance: IBUPROFEN
  13. INSULIN GLARGINE [Concomitant]
     Active Substance: INSULIN GLARGINE
  14. QUETIAPINE. [Concomitant]
     Active Substance: QUETIAPINE

REACTIONS (3)
  - Creatinine renal clearance decreased [None]
  - Hyperkalaemia [None]
  - Bradycardia [None]

NARRATIVE: CASE EVENT DATE: 20170104
